FAERS Safety Report 6563154-7 (Version None)
Quarter: 2010Q1

REPORT INFORMATION
  Report Type: 
  Country: None (occurrence: None)
  Receive Date: 20100130
  Receipt Date: 20091210
  Transmission Date: 20100710
  Serious: No
  Sender: FDA-Public Use
  Company Number: US-ABBOTT-09P-163-0613635-00

PATIENT
  Sex: Female

DRUGS (7)
  1. HUMIRA [Suspect]
     Indication: PSORIASIS
     Dosage: STARTING DOSE
     Dates: start: 20091203
  2. HUMIRA [Suspect]
     Dosage: DAY 8
  3. CELEXA [Concomitant]
     Indication: DRUG USE FOR UNKNOWN INDICATION
  4. YASMIN [Concomitant]
     Indication: DRUG USE FOR UNKNOWN INDICATION
  5. OLUX [Concomitant]
     Indication: DRUG USE FOR UNKNOWN INDICATION
  6. PROTOPIC [Concomitant]
     Indication: DRUG USE FOR UNKNOWN INDICATION
  7. BETAMETHASONE [Concomitant]
     Indication: DRUG USE FOR UNKNOWN INDICATION

REACTIONS (3)
  - INCORRECT DOSE ADMINISTERED [None]
  - INJECTION SITE HAEMORRHAGE [None]
  - INJECTION SITE PAIN [None]
